FAERS Safety Report 4518357-X (Version None)
Quarter: 2004Q4

REPORT INFORMATION
  Report Type: 
  Country: None (occurrence: None)
  Receive Date: 20041202
  Receipt Date: 20041119
  Transmission Date: 20050328
  Serious: Yes (Other)
  Sender: FDA-Public Use
  Company Number: 2004096880

PATIENT
  Sex: Female
  Weight: 48.9885 kg

DRUGS (9)
  1. NORVASC [Suspect]
     Indication: HYPERTENSION
     Dosage: 2.5 MG (2.5 MG, 1 IN 1 D), ORAL
     Route: 048
     Dates: end: 20041117
  2. ACCUPRIL [Suspect]
     Indication: HYPERTENSION
     Dosage: 10 MG (10 MG, 1IN 1 D), ORAL
     Route: 048
  3. AMLODIPINE [Suspect]
     Indication: HYPERTENSION
     Dosage: ORAL
     Route: 048
  4. LOTREL [Suspect]
     Indication: HYPERTENSION
     Dosage: ORAL
     Route: 048
  5. CANDESARTAN CILEXETIL (CANDESARTAN CILEXETIL) [Suspect]
     Indication: HYPERTENSION
     Dosage: ORAL
     Route: 048
  6. CLONIDINE [Suspect]
     Indication: HYPERTENSION
     Dosage: TRANSDERMAL
     Route: 062
  7. BUDESONIDE (BUDESONIDE) [Concomitant]
  8. ATENOLOL [Concomitant]
  9. SALBUTAMOL (SALBUTAMOL) [Concomitant]

REACTIONS (19)
  - COGNITIVE DISORDER [None]
  - COLD SWEAT [None]
  - CYST [None]
  - DIARRHOEA [None]
  - DRUG INEFFECTIVE [None]
  - DYSGEUSIA [None]
  - DYSPHAGIA [None]
  - FATIGUE [None]
  - FEELING ABNORMAL [None]
  - FEELING HOT [None]
  - GLOSSODYNIA [None]
  - HYPERHIDROSIS [None]
  - MUSCLE CRAMP [None]
  - OEDEMA PERIPHERAL [None]
  - PARAESTHESIA [None]
  - POLLAKIURIA [None]
  - RASH [None]
  - SKIN DISCOLOURATION [None]
  - TREATMENT NONCOMPLIANCE [None]
